FAERS Safety Report 8043422-2 (Version None)
Quarter: 2012Q1

REPORT INFORMATION
  Report Type: 
  Country: None (occurrence: None)
  Receive Date: 20120112
  Receipt Date: 20120109
  Transmission Date: 20120608
  Serious: Yes (Death, Hospitalization, Other)
  Sender: FDA-Public Use
  Company Number: CHPA2012US000713

PATIENT
  Age: 73 Year
  Sex: Female

DRUGS (2)
  1. IBUPROFEN [Suspect]
     Indication: ARTHRITIS
     Dosage: UNK, QD
     Route: 048
  2. NSAID'S [Suspect]
     Dosage: UNK, UNK

REACTIONS (5)
  - GASTROINTESTINAL HAEMORRHAGE [None]
  - SEPSIS [None]
  - ARTHRITIS [None]
  - GALLBLADDER INJURY [None]
  - DEPRESSION [None]
